FAERS Safety Report 18958011 (Version 1)
Quarter: 2021Q1

REPORT INFORMATION
  Report Type: Spontaneous
  Country: US (occurrence: US)
  Receive Date: 20210302
  Receipt Date: 20210302
  Transmission Date: 20210420
  Serious: Yes (Hospitalization)
  Sender: FDA-Public Use
  Company Number: None

PATIENT
  Age: 20 Year
  Sex: Female
  Weight: 41 kg

DRUGS (1)
  1. LAMOTRIGINE. [Suspect]
     Active Substance: LAMOTRIGINE
     Indication: BIPOLAR II DISORDER
     Dates: start: 20210126, end: 20210214

REACTIONS (7)
  - Pyrexia [None]
  - Conjunctival ulcer [None]
  - Skin ulcer [None]
  - Blister [None]
  - Vulval ulceration [None]
  - Ocular hyperaemia [None]
  - Rash [None]

NARRATIVE: CASE EVENT DATE: 20210216
